FAERS Safety Report 10350278 (Version 2)
Quarter: 2014Q3

REPORT INFORMATION
  Report Type: Spontaneous
  Country: US (occurrence: US)
  Receive Date: 20140730
  Receipt Date: 20140730
  Transmission Date: 20150326
  Serious: No
  Sender: FDA-Public Use
  Company Number: US-ABBVIE-14P-163-1188145-00

PATIENT
  Sex: Male

DRUGS (1)
  1. NIASPAN [Suspect]
     Active Substance: NIACIN
     Indication: BLOOD CHOLESTEROL INCREASED
     Dates: end: 201310

REACTIONS (6)
  - Drug effect decreased [Not Recovered/Not Resolved]
  - Product quality issue [Unknown]
  - Unevaluable event [Recovered/Resolved]
  - Medication residue present [Unknown]
  - Lipids abnormal [Not Recovered/Not Resolved]
  - Blood glucose increased [Recovered/Resolved]

NARRATIVE: CASE EVENT DATE: 2013
